FAERS Safety Report 5983698-6 (Version None)
Quarter: 2008Q4

REPORT INFORMATION
  Report Type: 
  Country: None (occurrence: None)
  Receive Date: 20081208
  Receipt Date: 20080306
  Transmission Date: 20090506
  Serious: No
  Sender: FDA-Public Use
  Company Number: US-AMGEN-KDL268571

PATIENT
  Sex: Female

DRUGS (3)
  1. ENBREL [Suspect]
     Indication: SYSTEMIC LUPUS ERYTHEMATOSUS
     Route: 058
     Dates: start: 20080216
  2. METHOTREXATE [Concomitant]
     Dates: start: 20070701
  3. HYDROXYCHLOROQUINE SULFATE [Concomitant]
     Dates: start: 20060101

REACTIONS (2)
  - ERYTHEMA [None]
  - FEELING HOT [None]
